FAERS Safety Report 23524023 (Version 1)
Quarter: 2024Q1

REPORT INFORMATION
  Report Type: Spontaneous
  Country: US (occurrence: US)
  Receive Date: 20240214
  Receipt Date: 20240214
  Transmission Date: 20240410
  Serious: Yes (Other)
  Sender: FDA-Public Use
  Company Number: US-SUNOVION-2024SUN000101

PATIENT

DRUGS (3)
  1. APTIOM [Suspect]
     Active Substance: ESLICARBAZEPINE ACETATE
     Dosage: 1600 MG, HS (TWO 800 MG TABLETS AT BEDTIME)
     Route: 048
  2. APTIOM [Suspect]
     Active Substance: ESLICARBAZEPINE ACETATE
     Dosage: 1600 MG, TID (ONE 400 MG TABLET IN THE MORNING, ONE 400 MG TABLET AT NOON AND TWO 400 MG TABLETS AT
     Route: 048
  3. APTIOM [Suspect]
     Active Substance: ESLICARBAZEPINE ACETATE
     Dosage: 1600 MG, HS (TWO 800MG TABLETS AT NIGHT)
     Route: 048

REACTIONS (4)
  - Change in seizure presentation [Unknown]
  - Drug ineffective [Unknown]
  - Tremor [Unknown]
  - Off label use [Unknown]
